FAERS Safety Report 5212717-X (Version None)
Quarter: 2006Q4

REPORT INFORMATION
  Report Type: 
  Country: None (occurrence: None)
  Receive Date: 20061115
  Receipt Date: 20060718
  Transmission Date: 20070319
  Serious: Yes (Other)
  Sender: FDA-Public Use
  Company Number: 200614799BWH

PATIENT
  Age: 35 Year
  Sex: Female
  Weight: 58.514 kg

DRUGS (7)
  1. NEXAVAR [Suspect]
     Indication: OVARIAN CANCER
     Dosage: 400 MG, BID, ORAL
     Route: 048
     Dates: start: 20060711, end: 20061001
  2. LETROZOLE [Concomitant]
  3. WELLBUTRIN XL [Concomitant]
  4. LUPRON [Concomitant]
  5. TYLENOL [Concomitant]
  6. ZITHROMAX [Concomitant]
  7. TYLENOL PM [DIPHENHYDRAMINE, PARACETAMOL] [Concomitant]

REACTIONS (6)
  - CARBOHYDRATE ANTIGEN 125 INCREASED [None]
  - DRUG INEFFECTIVE [None]
  - HEADACHE [None]
  - RASH [None]
  - SKIN HYPERTROPHY [None]
  - SKIN TIGHTNESS [None]
